FAERS Safety Report 6490980-5 (Version None)
Quarter: 2009Q4

REPORT INFORMATION
  Report Type: 
  Country: None (occurrence: None)
  Receive Date: 20091211
  Receipt Date: 20091207
  Transmission Date: 20100525
  Serious: Yes (Hospitalization)
  Sender: FDA-Public Use
  Company Number: FR-ROCHE-673338

PATIENT
  Sex: Male
  Weight: 36.7 kg

DRUGS (3)
  1. BEVACIZUMAB [Suspect]
     Indication: NON-SMALL CELL LUNG CANCER
     Dosage: LAST DOSE PRIOR TO SAE ON 01 DECEMBER 09, FORM: VIAL
     Route: 042
     Dates: start: 20091020
  2. ALIMTA [Suspect]
     Indication: NON-SMALL CELL LUNG CANCER
     Dosage: LAST DOSE PRIOR TO SAE ON 01 DEC 09, FORM: VIAL
     Route: 042
     Dates: start: 20091020
  3. CISPLATIN [Suspect]
     Indication: NON-SMALL CELL LUNG CANCER
     Dosage: LAST DOSE PRIOR TO SAE ON 01 DEC 09
     Route: 042
     Dates: start: 20091020

REACTIONS (1)
  - RENAL FAILURE ACUTE [None]
